FAERS Safety Report 4836248-1 (Version None)
Quarter: 2005Q4

REPORT INFORMATION
  Report Type: 
  Country: None (occurrence: None)
  Receive Date: 20051121
  Receipt Date: 20051121
  Transmission Date: 20060501
  Serious: Yes (Life-Threatening)
  Sender: FDA-Public Use
  Company Number: None

PATIENT
  Age: 19 Year
  Sex: Male
  Weight: 91.6266 kg

DRUGS (10)
  1. HALOPERIDOL [Suspect]
     Dosage: PRN PO
     Route: 048
     Dates: start: 20050608, end: 20040609
  2. ARIPIPRAZOLE 5 MG [Suspect]
     Dosage: BID
     Dates: start: 20040501
  3. KEPPRA [Concomitant]
  4. TOPAMAX [Concomitant]
  5. MOTRIN [Concomitant]
  6. ATIVAN [Concomitant]
  7. HALDOL [Concomitant]
  8. COGENTIN [Concomitant]
  9. BENADRYL [Concomitant]
  10. TRAZODONE [Concomitant]

REACTIONS (6)
  - DROOLING [None]
  - DYSPHAGIA [None]
  - FALL [None]
  - HEADACHE [None]
  - MYDRIASIS [None]
  - NEUROLEPTIC MALIGNANT SYNDROME [None]
